FAERS Safety Report 4525705-3 (Version None)
Quarter: 2004Q4

REPORT INFORMATION
  Report Type: 
  Country: None (occurrence: None)
  Receive Date: 20041116
  Receipt Date: 20040922
  Transmission Date: 20050328
  Serious: No
  Sender: FDA-Public Use
  Company Number: S04-USA-06783-01

PATIENT
  Age: 97 Year
  Sex: Female

DRUGS (12)
  1. NAMENDA [Suspect]
     Indication: DEMENTIA ALZHEIMER'S TYPE
     Dosage: 10 MG BID PO
     Route: 048
     Dates: start: 20040701
  2. NAMENDA [Suspect]
     Indication: DEMENTIA ALZHEIMER'S TYPE
     Dosage: 5 MG QD PO
     Route: 048
     Dates: start: 20040701, end: 20040701
  3. NAMENDA [Suspect]
     Indication: DEMENTIA ALZHEIMER'S TYPE
     Dosage: 5 MG BID PO
     Route: 048
     Dates: start: 20040701, end: 20040701
  4. NAMENDA [Suspect]
     Indication: DEMENTIA ALZHEIMER'S TYPE
     Dosage: 10 MG QAM PO
     Route: 048
     Dates: start: 20040701, end: 20040701
  5. NAMENDA [Suspect]
     Indication: DEMENTIA ALZHEIMER'S TYPE
     Dosage: 5 MG QHS PO
     Route: 048
     Dates: start: 20040701, end: 20040701
  6. ARICEPT [Concomitant]
  7. CELEXA [Concomitant]
  8. LEVOXYL [Concomitant]
  9. ACTONEL [Concomitant]
  10. VITAMIN B-12 [Concomitant]
  11. MULTI-VITAMIN [Concomitant]
  12. ASPIRIN [Concomitant]

REACTIONS (1)
  - DRUG INEFFECTIVE [None]
